FAERS Safety Report 5107577-1 (Version None)
Quarter: 2006Q3

REPORT INFORMATION
  Report Type: 
  Country: None (occurrence: None)
  Receive Date: 20060913
  Receipt Date: 20060913
  Transmission Date: 20061208
  Serious: No
  Sender: FDA-Public Use
  Company Number: None

PATIENT
  Age: 69 Year
  Sex: Male

DRUGS (1)
  1. THIORIDAZINE 100MG [Suspect]
     Indication: DEPRESSION
     Dosage: 1 TABLET AT BEDTIME
     Dates: start: 20060724

REACTIONS (3)
  - MEDICATION RESIDUE [None]
  - NIGHTMARE [None]
  - PHARMACEUTICAL PRODUCT COMPLAINT [None]
